FAERS Safety Report 15470595 (Version 1)
Quarter: 2018Q4

REPORT INFORMATION
  Report Type: Report from Study
  Country: MX (occurrence: MX)
  Receive Date: 20181005
  Receipt Date: 20181005
  Transmission Date: 20190205
  Serious: Yes (Other)
  Sender: FDA-Public Use
  Company Number: PHHY2018MX115040

PATIENT
  Sex: Male
  Weight: 72 kg

DRUGS (3)
  1. TEGRETOL [Suspect]
     Active Substance: CARBAMAZEPINE
     Indication: EPILEPSY
     Dosage: 2 ML, TID (SINCE 7 YEARS OLD)
     Route: 048
  2. TOPIRAMATE. [Concomitant]
     Active Substance: TOPIRAMATE
     Indication: SEIZURE
     Dosage: 2 DF, UNK (SINCE APPROXIMATELY 1 MONTH AGO)
     Route: 048
  3. TEGRETOL [Suspect]
     Active Substance: CARBAMAZEPINE
     Indication: EPILEPSY
     Dosage: 3 DF, QD (1 MONTH AGO, APPROXIMATELY) DAILY (1 TABLET AT 7 THEN AT 3 AND LAST TABLET AT 11)
     Route: 048

REACTIONS (5)
  - Headache [Recovered/Resolved]
  - Seizure [Recovered/Resolved]
  - Abnormal behaviour [Recovering/Resolving]
  - Hyperhidrosis [Recovered/Resolved]
  - Drug ineffective [Unknown]
